FAERS Safety Report 7690882-2 (Version None)
Quarter: 2011Q3

REPORT INFORMATION
  Report Type: 
  Country: None (occurrence: None)
  Receive Date: 20110818
  Receipt Date: 20110818
  Transmission Date: 20111222
  Serious: Yes (Hospitalization)
  Sender: FDA-Public Use
  Company Number: None

PATIENT
  Age: 84 Year
  Sex: Male

DRUGS (1)
  1. MORPHINE SULFATE [Suspect]
     Indication: PAIN
     Dosage: 15 MG
     Route: 048
     Dates: start: 20110810, end: 20110816

REACTIONS (3)
  - BEDRIDDEN [None]
  - ASTHENIA [None]
  - MENTAL STATUS CHANGES [None]
